FAERS Safety Report 7875875-4 (Version None)
Quarter: 2011Q4

REPORT INFORMATION
  Report Type: 
  Country: None (occurrence: None)
  Receive Date: 20111031
  Receipt Date: 20111024
  Transmission Date: 20120403
  Serious: No
  Sender: FDA-Public Use
  Company Number: US-BAYER-2011-104614

PATIENT
  Age: 54 Year
  Sex: Female
  Weight: 86 kg

DRUGS (1)
  1. BETASERON [Suspect]
     Dosage: 0.3 MG, QOD
     Route: 058

REACTIONS (3)
  - INJECTION SITE ERYTHEMA [None]
  - INJECTION SITE REACTION [None]
  - INJECTION SITE PAIN [None]
